FAERS Safety Report 14069139 (Version 2)
Quarter: 2018Q1

REPORT INFORMATION
  Report Type: Spontaneous
  Country: JP (occurrence: JP)
  Receive Date: 20171010
  Receipt Date: 20180111
  Transmission Date: 20180508
  Serious: Yes (Hospitalization, Other)
  Sender: FDA-Public Use
  Company Number: JP-APOTEX-2017AP019686

PATIENT
  Age: 9 Decade
  Sex: Male

DRUGS (4)
  1. AMLODIN [Concomitant]
     Active Substance: AMLODIPINE BESYLATE
     Indication: PRODUCT USED FOR UNKNOWN INDICATION
     Dosage: UNK
     Route: 065
  2. PAXIL [Suspect]
     Active Substance: PAROXETINE HYDROCHLORIDE
     Indication: PRODUCT USED FOR UNKNOWN INDICATION
     Dosage: 10 MG, QD
     Route: 048
     Dates: start: 2014
  3. ROHYPNOL [Concomitant]
     Active Substance: FLUNITRAZEPAM
     Indication: PRODUCT USED FOR UNKNOWN INDICATION
     Dosage: UNK
     Route: 065
  4. KREMEZIN [Suspect]
     Active Substance: ACTIVATED CHARCOAL
     Indication: RENAL FAILURE
     Dosage: UNK
     Route: 048

REACTIONS (2)
  - Orthostatic hypotension [Recovered/Resolved]
  - Pneumonia [Unknown]
